FAERS Safety Report 21302544 (Version 10)
Quarter: 2024Q2

REPORT INFORMATION
  Report Type: Spontaneous
  Country: IN (occurrence: IN)
  Receive Date: 20220907
  Receipt Date: 20240628
  Transmission Date: 20240716
  Serious: Yes (Hospitalization, Other)
  Sender: FDA-Public Use
  Company Number: IN-PFIZER INC-PV202200056385

PATIENT
  Age: 62 Year
  Sex: Male
  Weight: 84.2 kg

DRUGS (5)
  1. LORLATINIB [Suspect]
     Active Substance: LORLATINIB
     Dosage: UNK
     Route: 048
     Dates: start: 202206
  2. LORLATINIB [Suspect]
     Active Substance: LORLATINIB
     Dosage: 100 MG, 1X/DAY
     Route: 048
  3. ATORVASTATIN [Concomitant]
     Active Substance: ATORVASTATIN
     Dosage: 10 MG, 1X/DAY
  4. TELMISARTAN [Concomitant]
     Active Substance: TELMISARTAN
     Dosage: UNK
  5. ROSUVASTATIN CALCIUM [Concomitant]
     Active Substance: ROSUVASTATIN CALCIUM

REACTIONS (22)
  - Dyspnoea [Unknown]
  - Pyrexia [Recovered/Resolved]
  - Lower respiratory tract infection [Unknown]
  - Diabetes mellitus [Unknown]
  - Body mass index increased [Unknown]
  - Blood urea increased [Unknown]
  - Cough [Not Recovered/Not Resolved]
  - Speech disorder [Unknown]
  - Heart rate increased [Unknown]
  - Blood pressure increased [Unknown]
  - Pleural effusion [Recovering/Resolving]
  - Weight increased [Unknown]
  - Blood glucose increased [Unknown]
  - Chest pain [Recovered/Resolved]
  - Blood cholesterol increased [Unknown]
  - Hyperglycaemia [Unknown]
  - Glycosylated haemoglobin increased [Unknown]
  - Hyperlipidaemia [Unknown]
  - Atelectasis [Unknown]
  - Hepatomegaly [Unknown]
  - Hepatic steatosis [Unknown]
  - Urinary tract infection [Unknown]

NARRATIVE: CASE EVENT DATE: 20220711
